FAERS Safety Report 4279144-3 (Version None)
Quarter: 2004Q1

REPORT INFORMATION
  Report Type: 
  Country: None (occurrence: None)
  Receive Date: 20040127
  Receipt Date: 20040121
  Transmission Date: 20041129
  Serious: Yes (Hospitalization)
  Sender: FDA-Public Use
  Company Number: 200410186EU

PATIENT
  Age: 83 Year
  Sex: Female

DRUGS (8)
  1. KLEXANE [Suspect]
     Indication: PHLEBOTHROMBOSIS
     Route: 058
     Dates: start: 20030910
  2. WARAN [Suspect]
     Indication: PHLEBOTHROMBOSIS
     Route: 048
     Dates: start: 20030910, end: 20030910
  3. FOSAMAX [Concomitant]
  4. KALCIPOS-D [Concomitant]
  5. KALIUM RETARD [Concomitant]
  6. FUROSEMIDE [Concomitant]
  7. FOTIL [Concomitant]
     Route: 047
  8. XALATAN [Concomitant]
     Route: 047

REACTIONS (8)
  - ERYTHEMA [None]
  - HAEMATOMA [None]
  - HAEMOGLOBIN DECREASED [None]
  - INJECTION SITE HAEMORRHAGE [None]
  - INTERNATIONAL NORMALISED RATIO INCREASED [None]
  - OEDEMA PERIPHERAL [None]
  - SKIN NECROSIS [None]
  - WOUND [None]
